FAERS Safety Report 25590753 (Version 1)
Quarter: 2025Q3

REPORT INFORMATION
  Report Type: Spontaneous
  Country: EU (occurrence: EU)
  Receive Date: 20250722
  Receipt Date: 20250722
  Transmission Date: 20251020
  Serious: Yes (Hospitalization)
  Sender: BOEHRINGER INGELHEIM
  Company Number: None

PATIENT
  Age: 58 Year
  Sex: Female
  Weight: 52 kg

DRUGS (6)
  1. GILOTRIF [Suspect]
     Active Substance: AFATINIB
     Indication: Lung adenocarcinoma stage IV
     Dosage: CF COMMENTAIRES
     Dates: start: 20241004, end: 20250313
  2. GILOTRIF [Suspect]
     Active Substance: AFATINIB
     Dosage: CF COMMENTAIRES
     Dates: start: 20250129
  3. GILOTRIF [Suspect]
     Active Substance: AFATINIB
     Dosage: CF COMMENTAIRES
     Dates: start: 20250212
  4. GILOTRIF [Suspect]
     Active Substance: AFATINIB
     Dates: start: 20250226, end: 20250313
  5. GILOTRIF [Suspect]
     Active Substance: AFATINIB
     Dates: start: 20250318, end: 20250319
  6. GILOTRIF [Suspect]
     Active Substance: AFATINIB
     Dates: start: 20250401

REACTIONS (8)
  - Erythema [Recovered/Resolved]
  - Nausea [Recovered/Resolved]
  - Vomiting [Recovered/Resolved]
  - Diarrhoea [Recovered/Resolved]
  - Renal failure [Recovered/Resolved]
  - Hypokalaemia [Recovered/Resolved]
  - Metabolic acidosis [Recovered/Resolved]
  - Hepatic steatosis [Recovered/Resolved]

NARRATIVE: CASE EVENT DATE: 20250212
